FAERS Safety Report 6686554-3 (Version None)
Quarter: 2010Q2

REPORT INFORMATION
  Report Type: 
  Country: None (occurrence: None)
  Receive Date: 20100419
  Receipt Date: 20100409
  Transmission Date: 20101027
  Serious: Yes (Other)
  Sender: FDA-Public Use
  Company Number: US-WYE-H04242208

PATIENT
  Sex: Female

DRUGS (2)
  1. PREMPRO [Suspect]
     Indication: HORMONE REPLACEMENT THERAPY
  2. ESTRADERM [Suspect]

REACTIONS (7)
  - ATRIAL FIBRILLATION [None]
  - BREAST CANCER METASTATIC [None]
  - CARDIAC FAILURE CONGESTIVE [None]
  - CARDIOMYOPATHY [None]
  - CEREBELLAR INFARCTION [None]
  - CHRONIC OBSTRUCTIVE PULMONARY DISEASE [None]
  - GLAUCOMA [None]
